FAERS Safety Report 5402679-4 (Version None)
Quarter: 2007Q3

REPORT INFORMATION
  Report Type: 
  Country: None (occurrence: None)
  Receive Date: 20070801
  Receipt Date: 20070727
  Transmission Date: 20080115
  Serious: Yes (Other)
  Sender: FDA-Public Use
  Company Number: A0667171A

PATIENT
  Sex: Male

DRUGS (2)
  1. FLIXONASE [Suspect]
     Indication: DRUG USE FOR UNKNOWN INDICATION
  2. SYMBICORT [Concomitant]

REACTIONS (2)
  - DRUG EXPOSURE DURING PREGNANCY [None]
  - EYELID PTOSIS CONGENITAL [None]
